FAERS Safety Report 16874407 (Version 6)
Quarter: 2020Q2

REPORT INFORMATION
  Report Type: Spontaneous
  Country: FR (occurrence: FR)
  Receive Date: 20191001
  Receipt Date: 20200504
  Transmission Date: 20200713
  Serious: Yes (Death, Life-Threatening, Other)
  Sender: FDA-Public Use
  Company Number: FR-MYLANLABS-2019M1091629

PATIENT
  Age: 41 Year
  Sex: Male

DRUGS (13)
  1. TERCIAN                            /00759301/ [Suspect]
     Active Substance: CYAMEMAZINE
     Indication: PRODUCT USED FOR UNKNOWN INDICATION
     Dosage: UNK
     Route: 065
  2. NICOTINE. [Suspect]
     Active Substance: NICOTINE
     Dosage: 7 NICOTINE PATCHES ON THE BODY. THERE WERE 14 NICOTINE PATCHES (21 MG) IN THE BIN
     Route: 065
     Dates: start: 2017
  3. TRANXENE [Concomitant]
     Active Substance: CLORAZEPATE DIPOTASSIUM
     Indication: PRODUCT USED FOR UNKNOWN INDICATION
  4. LORMETAZEPAM [Suspect]
     Active Substance: LORMETAZEPAM
     Indication: PRODUCT USED FOR UNKNOWN INDICATION
     Dosage: UNK
     Route: 065
  5. NICOTINE. [Suspect]
     Active Substance: NICOTINE
     Dosage: 2 DOSAGE FORM, PRN
     Route: 062
     Dates: start: 2017
  6. NICOTINE. [Suspect]
     Active Substance: NICOTINE
     Indication: PRODUCT USED FOR UNKNOWN INDICATION
     Dosage: UNK, 1.5 MG CAPSULES, 5 BLISTERS; UNKNOWN
     Route: 065
  7. OXAZEPAM. [Suspect]
     Active Substance: OXAZEPAM
     Indication: PRODUCT USED FOR UNKNOWN INDICATION
     Dosage: UNK
     Route: 065
  8. NORDAZEPAM [Suspect]
     Active Substance: NORDAZEPAM
     Indication: PRODUCT USED FOR UNKNOWN INDICATION
     Dosage: UNK
     Route: 065
  9. NICOTINE. [Suspect]
     Active Substance: NICOTINE
     Dosage: AS NECESSARY, TRANSDERMAL PATCHES, 2 DOSAGE FORM
     Route: 065
  10. BUPRENORPHINE. [Suspect]
     Active Substance: BUPRENORPHINE
     Indication: PRODUCT USED FOR UNKNOWN INDICATION
     Dosage: UNK
     Route: 065
  11. NICOTINE. [Suspect]
     Active Substance: NICOTINE
     Dosage: 21 MILLIGRAM, UNK (21 MG, PATCHES)
     Route: 062
  12. CANNABIS [Concomitant]
     Active Substance: CANNABIS SATIVA SUBSP. INDICA TOP
     Indication: PRODUCT USED FOR UNKNOWN INDICATION
     Dosage: UNK
  13. NICOPASS [Suspect]
     Active Substance: NICOTINE
     Indication: PRODUCT USED FOR UNKNOWN INDICATION
     Dosage: 5 EMPTY BLISTERS OF NICOTINE TABLETS (NICOPASS? 1.5 MG) IN THE BIN
     Route: 065

REACTIONS (5)
  - Intentional overdose [Fatal]
  - Drug abuse [Fatal]
  - Asphyxia [Fatal]
  - Toxicity to various agents [Fatal]
  - Tobacco poisoning [Fatal]

NARRATIVE: CASE EVENT DATE: 2017
